FAERS Safety Report 11513562 (Version 1)
Quarter: 2015Q3

REPORT INFORMATION
  Report Type: Spontaneous
  Country: US (occurrence: None)
  Receive Date: 20150915
  Receipt Date: 20150915
  Transmission Date: 20151125
  Serious: Yes (Life-Threatening, Other)
  Sender: FDA-Public Use
  Company Number: None

PATIENT
  Age: 76 Year
  Sex: Female
  Weight: 111.59 kg

DRUGS (18)
  1. FOLIC ACID. [Concomitant]
     Active Substance: FOLIC ACID
  2. FISH OIL [Concomitant]
     Active Substance: FISH OIL
  3. METFORMIN 500MG TAB HER HERITAGE [Suspect]
     Active Substance: METFORMIN HYDROCHLORIDE
     Indication: TYPE 2 DIABETES MELLITUS
     Route: 048
     Dates: start: 20150210, end: 20150424
  4. LOSARTAN (COZAAR) [Concomitant]
  5. CARVEDILOL (COREG) [Concomitant]
  6. OMEPRAZOLE. [Concomitant]
     Active Substance: OMEPRAZOLE
  7. ECOTRIN [Concomitant]
     Active Substance: ASPIRIN
  8. VITAMIN C [Concomitant]
     Active Substance: ASCORBIC ACID
  9. CYANOCOBALAMIN. [Concomitant]
     Active Substance: CYANOCOBALAMIN
  10. MULTI-VITAMIN [Concomitant]
     Active Substance: .ALPHA.-TOCOPHEROL ACETATE, DL-\ASCORBIC ACID\CYANOCOBALAMIN\FLUORIDE ION\FOLIC ACID\NIACIN\PYRIDOXINE\RIBOFLAVIN\THIAMINE\VITAMIN A\VITAMIN D
  11. VITAMIN E [Concomitant]
     Active Substance: .ALPHA.-TOCOPHEROL
  12. CALCIUM WITH VIT. D [Concomitant]
  13. LIPITOR [Concomitant]
     Active Substance: ATORVASTATIN CALCIUM
  14. ALPRAZOLAM (XANAX) [Concomitant]
  15. FLUOXETINE (PROZAC) [Concomitant]
  16. HYOSCYAMINE (LEVSIN) [Concomitant]
  17. GLIMERPIRIDE [Concomitant]
     Active Substance: GLIMEPIRIDE
  18. ALPHA LIPOIC ACID [Concomitant]
     Active Substance: .ALPHA.-LIPOIC ACID

REACTIONS (6)
  - Haemorrhage [None]
  - Immune system disorder [None]
  - Pruritus [None]
  - Rash [None]
  - Nausea [None]
  - Blood pressure decreased [None]

NARRATIVE: CASE EVENT DATE: 20150914
